FAERS Safety Report 4273679-5 (Version None)
Quarter: 2004Q1

REPORT INFORMATION
  Report Type: 
  Country: None (occurrence: None)
  Receive Date: 20040116
  Receipt Date: 20040116
  Transmission Date: 20041129
  Serious: Yes (Hospitalization)
  Sender: FDA-Public Use
  Company Number: None

PATIENT
  Age: 71 Year
  Sex: Male
  Weight: 116.1208 kg

DRUGS (1)
  1. VALSARTAN [Suspect]
     Dosage: 80 MG PO QD
     Route: 048

REACTIONS (2)
  - ARRHYTHMIA [None]
  - HYPERKALAEMIA [None]
